FAERS Safety Report 7765756-9 (Version None)
Quarter: 2011Q3

REPORT INFORMATION
  Report Type: 
  Country: None (occurrence: None)
  Receive Date: 20110921
  Receipt Date: 20110907
  Transmission Date: 20111222
  Serious: Yes (Other)
  Sender: FDA-Public Use
  Company Number: US-BAYER-2011-083870

PATIENT
  Age: 19 Year
  Sex: Female
  Weight: 50 kg

DRUGS (1)
  1. ASPIRIN [Suspect]
     Indication: HEADACHE
     Dosage: 2 DF, ONCE
     Route: 048
     Dates: start: 20110906, end: 20110906

REACTIONS (5)
  - CHOKING SENSATION [None]
  - ABDOMINAL DISCOMFORT [None]
  - HYPERSENSITIVITY [None]
  - VOMITING [None]
  - THROAT IRRITATION [None]
